FAERS Safety Report 21046793 (Version 1)
Quarter: 2022Q3

REPORT INFORMATION
  Report Type: Spontaneous
  Country: US (occurrence: US)
  Receive Date: 20220706
  Receipt Date: 20220706
  Transmission Date: 20221027
  Serious: Yes (Other)
  Sender: FDA-Public Use
  Company Number: US-MYLANLABS-2022M1049379

PATIENT
  Age: 40 Year
  Sex: Male

DRUGS (4)
  1. DILTIAZEM [Suspect]
     Active Substance: DILTIAZEM
     Indication: Anal spasm
     Dosage: UNK (CREAM)
     Route: 061
  2. DILTIAZEM [Suspect]
     Active Substance: DILTIAZEM
     Indication: Rectal tenesmus
  3. LIDOCAINE [Suspect]
     Active Substance: LIDOCAINE
     Indication: Anal spasm
     Dosage: UNK
     Route: 061
  4. LIDOCAINE [Suspect]
     Active Substance: LIDOCAINE
     Indication: Rectal tenesmus

REACTIONS (2)
  - Drug ineffective for unapproved indication [Unknown]
  - Off label use [Unknown]
